FAERS Safety Report 10867564 (Version 1)
Quarter: 2015Q1

REPORT INFORMATION
  Report Type: Report from Study
  Country: US (occurrence: US)
  Receive Date: 20150225
  Receipt Date: 20150225
  Transmission Date: 20150721
  Serious: Yes (Other)
  Sender: FDA-Public Use
  Company Number: US-BAYER-2015-025060

PATIENT
  Age: 23 Year
  Sex: Female

DRUGS (1)
  1. CIPROFLOXACIN. [Suspect]
     Active Substance: CIPROFLOXACIN
     Dosage: UNK, UNK

REACTIONS (9)
  - Abdominal distension [None]
  - Menstruation delayed [None]
  - Abdominal pain [None]
  - Breast tenderness [None]
  - Muscle tightness [None]
  - Breast pain [None]
  - Dysmenorrhoea [None]
  - Pharyngotonsillitis [None]
  - Menstrual disorder [None]
